FAERS Safety Report 16377578 (Version 2)
Quarter: 2019Q2

REPORT INFORMATION
  Report Type: Spontaneous
  Country: LB (occurrence: LB)
  Receive Date: 20190531
  Receipt Date: 20190606
  Transmission Date: 20190711
  Serious: Yes (Hospitalization)
  Sender: FDA-Public Use
  Company Number: LB-MYLANLABS-2019M1051912

PATIENT
  Age: 30 Year
  Sex: Female

DRUGS (1)
  1. CALCITONIN SALMON. [Suspect]
     Active Substance: CALCITONIN SALMON
     Indication: BONE MARROW OEDEMA SYNDROME
     Dosage: UNK

REACTIONS (10)
  - Gait disturbance [Unknown]
  - Joint range of motion decreased [Unknown]
  - Premature delivery [Recovered/Resolved]
  - Hip fracture [Unknown]
  - Limb asymmetry [Unknown]
  - Maternal exposure during pregnancy [Recovered/Resolved]
  - Pain [Unknown]
  - Osteopenia [Unknown]
  - Bone formation decreased [Unknown]
  - Osteoarthritis [Unknown]
